FAERS Safety Report 8487466-5 (Version None)
Quarter: 2012Q3

REPORT INFORMATION
  Report Type: 
  Country: None (occurrence: None)
  Receive Date: 20120705
  Receipt Date: 20120628
  Transmission Date: 20120928
  Serious: Yes (Other)
  Sender: FDA-Public Use
  Company Number: DE-BAYER-2012-064739

PATIENT
  Age: 33 Year
  Sex: Female
  Weight: 115 kg

DRUGS (2)
  1. LEVOTHYROXINE SODIUM [Concomitant]
     Indication: HYPOTHYROIDISM
  2. MIRENA [Suspect]
     Dosage: UNK
     Route: 015
     Dates: start: 20050501

REACTIONS (7)
  - FOLLICULITIS [None]
  - IRRITABILITY [None]
  - FURUNCLE [None]
  - MOOD SWINGS [None]
  - BACK PAIN [None]
  - WEIGHT INCREASED [None]
  - GENITAL ABSCESS [None]
